FAERS Safety Report 6403985-7 (Version None)
Quarter: 2009Q4

REPORT INFORMATION
  Report Type: 
  Country: None (occurrence: None)
  Receive Date: 20091016
  Receipt Date: 20090818
  Transmission Date: 20100525
  Serious: No
  Sender: FDA-Public Use
  Company Number: US-ALEXION-A200900667

PATIENT
  Sex: Female

DRUGS (10)
  1. SOLIRIS [Suspect]
     Indication: PAROXYSMAL NOCTURNAL HAEMOGLOBINURIA
     Dosage: 600 MG, QW X4
     Route: 042
     Dates: start: 20070710, end: 20070731
  2. SOLIRIS [Suspect]
     Dosage: 900 MG, Q2W
     Route: 042
     Dates: start: 20070807
  3. SOLIRIS [Suspect]
     Dosage: UNK
     Route: 042
     Dates: start: 20090817
  4. ANTIBIOTICS [Concomitant]
     Dosage: UNK
     Dates: end: 20090817
  5. METOPROLOL [Concomitant]
     Dosage: UNK
     Route: 048
  6. DILAUDID [Concomitant]
     Indication: PAIN
     Dosage: 2 MG Q 3-4 HOURS PRN
     Route: 048
  7. LOVENOX [Concomitant]
     Dosage: 120 MG, QD
  8. CELEXA [Concomitant]
     Dosage: UNK
     Route: 048
  9. ADVAIR DISKUS 100/50 [Concomitant]
     Dosage: UNK
  10. ALBUTEROL [Concomitant]
     Dosage: UNK

REACTIONS (1)
  - PAIN [None]
